FAERS Safety Report 16795406 (Version 5)
Quarter: 2019Q4

REPORT INFORMATION
  Report Type: Spontaneous
  Country: GB (occurrence: GB)
  Receive Date: 20190911
  Receipt Date: 20191022
  Transmission Date: 20200122
  Serious: Yes (Hospitalization)
  Sender: FDA-Public Use
  Company Number: GB-SA-2019SA248732

PATIENT
  Age: 84 Year
  Sex: Female

DRUGS (3)
  1. TRITACE [Suspect]
     Active Substance: RAMIPRIL
     Dosage: USED TO TAKE 2.5 MG
     Route: 065
  2. TRITACE [Suspect]
     Active Substance: RAMIPRIL
     Dosage: 5 MG, QD, 5 MG TOOK ONLY 1 A DAY
     Route: 065
     Dates: start: 2019
  3. PLAVIX [Suspect]
     Active Substance: CLOPIDOGREL BISULFATE
     Dosage: UNK UNK, UNK
     Route: 065

REACTIONS (13)
  - Renal haemorrhage [Unknown]
  - Diarrhoea [Unknown]
  - Hypoaesthesia [Unknown]
  - Renal cancer [Unknown]
  - Condition aggravated [Unknown]
  - Malaise [Unknown]
  - Hypertension [Unknown]
  - Expired product administered [Unknown]
  - Cerebrovascular accident [Unknown]
  - Pyrexia [Unknown]
  - Monoplegia [Unknown]
  - Intentional product use issue [Unknown]
  - Headache [Unknown]

NARRATIVE: CASE EVENT DATE: 20190909
